FAERS Safety Report 8292369-5 (Version None)
Quarter: 2012Q2

REPORT INFORMATION
  Report Type: 
  Country: None (occurrence: None)
  Receive Date: 20120417
  Receipt Date: 20120410
  Transmission Date: 20120825
  Serious: Yes (Other)
  Sender: FDA-Public Use
  Company Number: PHHY2012US030782

PATIENT
  Age: 79 Year
  Sex: Female

DRUGS (3)
  1. ASPIRIN [Suspect]
     Indication: SCIATIC NERVE PALSY
     Dosage: 3 OR 4 A DAY
     Route: 048
  2. ASPIRIN [Suspect]
     Indication: PAIN
     Dosage: 1 DF, DAILLY
     Route: 048
     Dates: start: 19900101
  3. VITAMIN B-12 [Concomitant]

REACTIONS (5)
  - INCORRECT DRUG ADMINISTRATION DURATION [None]
  - FOOT FRACTURE [None]
  - SPINAL FRACTURE [None]
  - FALL [None]
  - RIB FRACTURE [None]
